FAERS Safety Report 15017918 (Version 2)
Quarter: 2018Q2

REPORT INFORMATION
  Report Type: Spontaneous
  Country: RU (occurrence: RU)
  Receive Date: 20180615
  Receipt Date: 20180627
  Transmission Date: 20180711
  Serious: Yes (Hospitalization, Other)
  Sender: FDA-Public Use
  Company Number: RU-ASTRAZENECA-2018SE04506

PATIENT
  Age: 60 Year
  Sex: Male
  Weight: 95 kg

DRUGS (11)
  1. CONCOR [Concomitant]
     Active Substance: BISOPROLOL FUMARATE
  2. TRIGRIM [Concomitant]
  3. PREDUCTAL A [Concomitant]
  4. BRILINTA [Suspect]
     Active Substance: TICAGRELOR
     Indication: MYOCARDIAL INFARCTION
     Route: 048
     Dates: start: 20171203
  5. GLIFORMIN [Concomitant]
  6. LOSARTAN. [Concomitant]
     Active Substance: LOSARTAN
  7. BRILINTA [Suspect]
     Active Substance: TICAGRELOR
     Indication: MYOCARDIAL INFARCTION
     Route: 048
     Dates: start: 20171205
  8. CARDIOMAGNYL [Concomitant]
     Active Substance: ASPIRIN\MAGNESIUM HYDROXIDE
  9. NOLPAZA [Concomitant]
     Active Substance: PANTOPRAZOLE SODIUM
  10. ATORIS [Concomitant]
     Active Substance: ATORVASTATIN CALCIUM
  11. INSULIN [Concomitant]
     Active Substance: INSULIN NOS

REACTIONS (5)
  - Oedema peripheral [Not Recovered/Not Resolved]
  - Cough [Recovered/Resolved]
  - Dyspnoea exertional [Not Recovered/Not Resolved]
  - Arrhythmia [Recovered/Resolved]
  - Lymphadenitis [Unknown]

NARRATIVE: CASE EVENT DATE: 20171204
